FAERS Safety Report 8511807-3 (Version None)
Quarter: 2012Q3

REPORT INFORMATION
  Report Type: 
  Country: None (occurrence: None)
  Receive Date: 20120716
  Receipt Date: 20120710
  Transmission Date: 20120928
  Serious: Yes (Other)
  Sender: FDA-Public Use
  Company Number: AR-PFIZER INC-2012165251

PATIENT
  Age: 51 Year
  Sex: Female

DRUGS (2)
  1. SOMAVERT [Suspect]
     Dosage: 15 MG, UNK 7X WEEK
     Dates: start: 20111201
  2. SOMAVERT [Suspect]
     Dosage: 10 MG, UNK 7X WEEK

REACTIONS (2)
  - MALAISE [None]
  - DIABETES MELLITUS [None]
